FAERS Safety Report 25446602 (Version 1)
Quarter: 2025Q2

REPORT INFORMATION
  Report Type: Spontaneous
  Country: DE (occurrence: DE)
  Receive Date: 20250617
  Receipt Date: 20250617
  Transmission Date: 20250717
  Serious: Yes (Other)
  Sender: SANDOZ
  Company Number: DE-SANDOZ-SDZ2025DE041880

PATIENT
  Age: 58 Year
  Sex: Male
  Weight: 82 kg

DRUGS (1)
  1. CEFPODOXIME PROXETIL [Suspect]
     Active Substance: CEFPODOXIME PROXETIL
     Indication: Wound infection bacterial
     Dosage: 400 MG, BID (2TBL - 0TABL - 2TBL (INGESTION VIA THE MOUTH))
     Route: 048
     Dates: start: 20250602

REACTIONS (2)
  - Erythema [Unknown]
  - Skin exfoliation [Unknown]
